FAERS Safety Report 6928032-X (Version None)
Quarter: 2010Q3

REPORT INFORMATION
  Report Type: 
  Country: None (occurrence: None)
  Receive Date: 20100816
  Receipt Date: 20100816
  Transmission Date: 20110219
  Serious: Yes (Hospitalization, Other)
  Sender: FDA-Public Use
  Company Number: None

PATIENT
  Sex: Female
  Weight: 113.3993 kg

DRUGS (1)
  1. YASMIN [Suspect]
     Indication: POLYCYSTIC OVARIES
     Dosage: 1 TAB QD PO
     Route: 048
     Dates: start: 20020101, end: 20071231

REACTIONS (4)
  - CHOLECYSTECTOMY [None]
  - NAUSEA [None]
  - SKIN DISORDER [None]
  - VOMITING [None]
